FAERS Safety Report 5627974-5 (Version None)
Quarter: 2008Q1

REPORT INFORMATION
  Report Type: 
  Country: None (occurrence: None)
  Receive Date: 20080215
  Receipt Date: 20080211
  Transmission Date: 20080703
  Serious: Yes (Life-Threatening, Hospitalization, Other)
  Sender: FDA-Public Use
  Company Number: CZ-BRISTOL-MYERS SQUIBB COMPANY-13817465

PATIENT
  Age: 67 Year
  Sex: Male

DRUGS (9)
  1. SPRYCEL [Suspect]
     Indication: CHRONIC MYELOID LEUKAEMIA
     Route: 048
     Dates: start: 20070412, end: 20070609
  2. ZINNAT [Concomitant]
     Route: 048
  3. ITRACONAZOLE [Concomitant]
     Route: 048
  4. PRESTARIUM [Concomitant]
     Route: 048
  5. HYDROCHLOROTHIAZIDE [Concomitant]
     Route: 048
  6. CLARITIN [Concomitant]
     Route: 048
  7. HYDROXYUREA [Concomitant]
     Route: 048
  8. TRIAMCINOLONE [Concomitant]
     Route: 048
  9. MAGNESIUM [Concomitant]
     Route: 048

REACTIONS (5)
  - ATRIAL FLUTTER [None]
  - ATRIOVENTRICULAR BLOCK FIRST DEGREE [None]
  - ATRIOVENTRICULAR BLOCK SECOND DEGREE [None]
  - GENERALISED OEDEMA [None]
  - HYDROTHORAX [None]
